FAERS Safety Report 6800356-6 (Version None)
Quarter: 2010Q2

REPORT INFORMATION
  Report Type: 
  Country: None (occurrence: None)
  Receive Date: 20100623
  Receipt Date: 20100617
  Transmission Date: 20101027
  Serious: Yes (Hospitalization)
  Sender: FDA-Public Use
  Company Number: WAES1003USA00795

PATIENT
  Age: 56 Year
  Sex: Male
  Weight: 59.8748 kg

DRUGS (7)
  1. VYTORIN [Suspect]
     Indication: ACUTE CORONARY SYNDROME
     Dosage: 10/40 MG/DAILY/PO
     Route: 048
     Dates: start: 20071206
  2. PLACEBO (UNSPECIFIED) UNK [Suspect]
     Indication: ACUTE CORONARY SYNDROME
     Dosage: PO
     Route: 048
     Dates: start: 20071206
  3. PLACEBO (UNSPECIFIED) UNK [Suspect]
     Indication: ACUTE CORONARY SYNDROME
     Dosage: PO
     Route: 048
     Dates: start: 20071206
  4. ASACOL [Concomitant]
  5. ASPIRIN [Concomitant]
  6. CANDESARTAN [Concomitant]
  7. FELODIPINE [Concomitant]

REACTIONS (2)
  - NEPHROLITHIASIS [None]
  - WHITE BLOOD CELL COUNT INCREASED [None]
